FAERS Safety Report 5207725-9 (Version None)
Quarter: 2006Q4

REPORT INFORMATION
  Report Type: 
  Country: None (occurrence: None)
  Receive Date: 20061030
  Receipt Date: 20060905
  Transmission Date: 20070319
  Serious: No
  Sender: FDA-Public Use
  Company Number: 2006CT000723

PATIENT
  Age: 76 Year
  Sex: Female
  Weight: 91.6 kg

DRUGS (21)
  1. VENTAVIS [Suspect]
     Indication: PULMONARY HYPERTENSION
     Dosage: SEE IMAGE
     Route: 055
     Dates: start: 20060901, end: 20060902
  2. VENTAVIS [Suspect]
     Indication: PULMONARY HYPERTENSION
     Dosage: SEE IMAGE
     Route: 055
     Dates: start: 20060902, end: 20060904
  3. VENTAVIS [Suspect]
     Indication: PULMONARY HYPERTENSION
     Dosage: SEE IMAGE
     Route: 055
     Dates: start: 20060904
  4. TYLENOL W/ CODEINE [Concomitant]
  5. EVISTA [Concomitant]
  6. AMBIEN [Concomitant]
  7. FUROSEMIDE [Concomitant]
  8. WARFARIN SODIUM [Concomitant]
  9. ATORVASTATIN CALCIUM [Concomitant]
  10. VICODIN [Concomitant]
  11. AVAPRO [Concomitant]
  12. AMIODARONE HCL [Concomitant]
  13. IBUPROFEN [Concomitant]
  14. GLIPIZIDE [Concomitant]
  15. LEVOTHYROXINE SODIUM [Concomitant]
  16. ALPRAZOLAM [Concomitant]
  17. TEMAZEPAM [Concomitant]
  18. SPIRONOLACTONE [Concomitant]
  19. PIOGLITAZONE [Concomitant]
  20. OMEGA 3 [Concomitant]
  21. SILDANAFIL [Concomitant]

REACTIONS (3)
  - CHEST DISCOMFORT [None]
  - FATIGUE [None]
  - HEADACHE [None]
